FAERS Safety Report 7954002-9 (Version None)
Quarter: 2011Q4

REPORT INFORMATION
  Report Type: 
  Country: None (occurrence: None)
  Receive Date: 20111202
  Receipt Date: 20111202
  Transmission Date: 20120403
  Serious: Yes (Hospitalization)
  Sender: FDA-Public Use
  Company Number: None

PATIENT
  Age: 26 Year
  Sex: Female
  Weight: 71.667 kg

DRUGS (1)
  1. SULFAMETHOXAZOLE AND TRIMETHOPRIM [Suspect]
     Indication: URINARY TRACT INFECTION
     Dosage: 1 BY MOUTH
     Route: 048
     Dates: start: 20111126, end: 20111129

REACTIONS (5)
  - SKIN BURNING SENSATION [None]
  - SCAR [None]
  - ERYTHEMA [None]
  - SKIN EXFOLIATION [None]
  - RASH [None]
